FAERS Safety Report 10084557 (Version 2)
Quarter: 2014Q3

REPORT INFORMATION
  Report Type: Report from Study
  Country: KR (occurrence: KR)
  Receive Date: 20140417
  Receipt Date: 20140815
  Transmission Date: 20150326
  Serious: Yes (Hospitalization)
  Sender: FDA-Public Use
  Company Number: KR-GLAXOSMITHKLINE-Z0022441A

PATIENT
  Age: 34 Year
  Sex: Female
  Weight: 51 kg

DRUGS (1)
  1. BELIMUMAB [Suspect]
     Active Substance: BELIMUMAB
     Indication: SYSTEMIC LUPUS ERYTHEMATOSUS
     Dosage: 10MGK CYCLIC
     Route: 042
     Dates: start: 20130726

REACTIONS (1)
  - Hepatic steatosis [Recovered/Resolved]

NARRATIVE: CASE EVENT DATE: 20140404
